FAERS Safety Report 6653555-0 (Version None)
Quarter: 2010Q1

REPORT INFORMATION
  Report Type: 
  Country: None (occurrence: None)
  Receive Date: 20100326
  Receipt Date: 20100316
  Transmission Date: 20100710
  Serious: Yes (Hospitalization)
  Sender: FDA-Public Use
  Company Number: TR-ELI_LILLY_AND_COMPANY-TR201003004321

PATIENT
  Age: 62 Year
  Sex: Female

DRUGS (5)
  1. HUMULIN 70/30 [Suspect]
     Indication: DIABETES MELLITUS
     Dosage: 40 U, EACH MORNING
     Route: 058
     Dates: start: 20050101
  2. HUMULIN 70/30 [Suspect]
     Dosage: 24 U, EACH EVENING
     Route: 058
     Dates: start: 20050101
  3. GLIFOR [Concomitant]
     Indication: DIABETES MELLITUS
     Dosage: 1000 MG, DAILY (1/D)
     Route: 048
  4. PRAVACHOL [Concomitant]
     Dosage: 25 MG, DAILY (1/D)
     Route: 048
  5. DELIX [Concomitant]
     Dosage: 5 MG, DAILY (1/D)
     Route: 048

REACTIONS (4)
  - HYPERHIDROSIS [None]
  - HYPOAESTHESIA [None]
  - PAIN [None]
  - PAIN IN EXTREMITY [None]
